FAERS Safety Report 23938183 (Version 5)
Quarter: 2025Q2

REPORT INFORMATION
  Report Type: Report from Study
  Country: DE (occurrence: DE)
  Receive Date: 20240604
  Receipt Date: 20250612
  Transmission Date: 20250717
  Serious: Yes (Death, Hospitalization, Other)
  Sender: PFIZER
  Company Number: DE-SEATTLE GENETICS-2024SGN01848

PATIENT
  Age: 79 Year
  Sex: Female
  Weight: 57.2 kg

DRUGS (15)
  1. TUCATINIB [Suspect]
     Active Substance: TUCATINIB
     Indication: HER2 positive breast cancer
     Dosage: 600 MG, DAILY
     Route: 048
     Dates: start: 20240118, end: 20240207
  2. TRASTUZUMAB [Suspect]
     Active Substance: TRASTUZUMAB
     Indication: HER2 positive breast cancer
     Route: 065
     Dates: start: 20240118
  3. CAPECITABINE [Suspect]
     Active Substance: CAPECITABINE
     Indication: HER2 positive breast cancer
     Dosage: 1500 MG, BID ON DAYS 1-14
     Route: 065
     Dates: start: 20240118
  4. SODIUM CHLORIDE [Concomitant]
     Active Substance: SODIUM CHLORIDE
     Indication: Diarrhoea
     Dates: start: 20240128
  5. LOPERAMIDE [Concomitant]
     Active Substance: LOPERAMIDE
     Indication: Diarrhoea
  6. ELIQUIS [Concomitant]
     Active Substance: APIXABAN
     Dosage: 5 MG, QAM
  7. METOPROLOL SUCCINATE [Concomitant]
     Active Substance: METOPROLOL SUCCINATE
  8. RAMIPRIL [Concomitant]
     Active Substance: RAMIPRIL
  9. PANTOPRAZOLE [Concomitant]
     Active Substance: PANTOPRAZOLE
     Indication: Prophylaxis
     Dosage: 40 MG, QPM
  10. DEXAMETHASONE [Concomitant]
     Active Substance: DEXAMETHASONE
     Dosage: 4 MG, QAM
  11. FRESUBIN ENERGY [CARBOHYDRATES NOS;FATS NOS;MINERALS NOS;PROTEINS NOS; [Concomitant]
  12. METAMIZOLE SODIUM [Concomitant]
     Active Substance: METAMIZOLE SODIUM
     Dosage: 500 MG/ML, 20-40 DROPS AS NEEDED UPTO QID
  13. NITRANGIN [Concomitant]
  14. LORAZEPAM [Concomitant]
     Active Substance: LORAZEPAM
  15. ONDANSETRON [Concomitant]
     Active Substance: ONDANSETRON

REACTIONS (2)
  - General physical health deterioration [Fatal]
  - Urosepsis [Fatal]

NARRATIVE: CASE EVENT DATE: 20240206
